FAERS Safety Report 25006011 (Version 2)
Quarter: 2025Q1

REPORT INFORMATION
  Report Type: Spontaneous
  Country: US (occurrence: US)
  Receive Date: 20250224
  Receipt Date: 20250304
  Transmission Date: 20250408
  Serious: Yes (Other)
  Sender: TG THERAPEUTICS
  Company Number: US-TG THERAPEUTICS INC.-TGT004612

PATIENT

DRUGS (4)
  1. BRIUMVI [Suspect]
     Active Substance: UBLITUXIMAB-XIIY
     Indication: Multiple sclerosis
     Route: 042
  2. BRIUMVI [Suspect]
     Active Substance: UBLITUXIMAB-XIIY
     Route: 042
  3. BRIUMVI [Suspect]
     Active Substance: UBLITUXIMAB-XIIY
     Route: 042
  4. BRIUMVI [Suspect]
     Active Substance: UBLITUXIMAB-XIIY
     Route: 042
     Dates: start: 20250127, end: 20250127

REACTIONS (2)
  - Neuropathy peripheral [Unknown]
  - Gait disturbance [Unknown]
